FAERS Safety Report 4913555-5 (Version None)
Quarter: 2006Q1

REPORT INFORMATION
  Report Type: 
  Country: None (occurrence: None)
  Receive Date: 20060210
  Receipt Date: 20060127
  Transmission Date: 20060701
  Serious: Yes (Death)
  Sender: FDA-Public Use
  Company Number: 2005-02599

PATIENT
  Age: 57 Year
  Sex: Female
  Weight: 66 kg

DRUGS (3)
  1. VELCADE [Suspect]
     Indication: MULTIPLE MYELOMA
     Dosage: 2.20 MG, INTRAVENOUS
     Route: 042
     Dates: start: 20050119, end: 20050603
  2. VELCADE [Suspect]
     Indication: MULTIPLE MYELOMA
     Dosage: 2.20 MG, INTRAVENOUS
     Route: 042
     Dates: start: 20041208
  3. ZOMETA [Concomitant]

REACTIONS (4)
  - DRUG RESISTANCE [None]
  - MALIGNANT NEOPLASM PROGRESSION [None]
  - MULTIPLE MYELOMA [None]
  - THROMBOCYTOPENIA [None]
